FAERS Safety Report 13855122 (Version 2)
Quarter: 2020Q2

REPORT INFORMATION
  Report Type: Spontaneous
  Country: US (occurrence: US)
  Receive Date: 20170810
  Receipt Date: 20200617
  Transmission Date: 20200713
  Serious: Yes (Hospitalization, Other)
  Sender: FDA-Public Use
  Company Number: US-PFIZER INC-2016244082

PATIENT
  Age: 58 Year
  Sex: Male

DRUGS (8)
  1. CIPROFLOXACIN. [Concomitant]
     Active Substance: CIPROFLOXACIN
     Indication: ANTIBIOTIC THERAPY
     Dosage: 1 DOSE,  400 MG
  2. METRONIDAZOLE. [Concomitant]
     Active Substance: METRONIDAZOLE
     Indication: ANTIBIOTIC PROPHYLAXIS
  3. SIMVASTATIN. [Concomitant]
     Active Substance: SIMVASTATIN
     Dosage: 40 MG, DAILY
  4. BUPIVACAINE HCL [Suspect]
     Active Substance: BUPIVACAINE HYDROCHLORIDE
     Dosage: 0.5%, AT 2 MG/H FOR 2 DAYS, TOTAL DOSE 171 MG
  5. CIPROFLOXACIN. [Concomitant]
     Active Substance: CIPROFLOXACIN
     Indication: ANTIBIOTIC PROPHYLAXIS
  6. METRONIDAZOLE. [Concomitant]
     Active Substance: METRONIDAZOLE
     Indication: ANTIBIOTIC THERAPY
     Dosage: 1 DOSE, 500 MG
  7. ASPIRIN. [Concomitant]
     Active Substance: ASPIRIN
     Dosage: UNK, LOW-DOSE
  8. BUPIVACAINE HCL [Suspect]
     Active Substance: BUPIVACAINE HYDROCHLORIDE
     Indication: GENERAL ANAESTHESIA
     Dosage: 15ML OF 0.5% BUPIVACAINE INTRAOPERATIVELY

REACTIONS (2)
  - Drug-induced liver injury [Recovered/Resolved]
  - Jaundice cholestatic [Recovered/Resolved]
